FAERS Safety Report 10886913 (Version 10)
Quarter: 2022Q2

REPORT INFORMATION
  Report Type: Spontaneous
  Country: US (occurrence: US)
  Receive Date: 20150304
  Receipt Date: 20220502
  Transmission Date: 20220721
  Serious: No
  Sender: FDA-Public Use
  Company Number: US-PFIZER INC-2015072718

PATIENT
  Age: 66 Year
  Sex: Female
  Weight: 53 kg

DRUGS (29)
  1. LYRICA [Suspect]
     Active Substance: PREGABALIN
     Indication: Fibromyalgia
     Dosage: 75 MG, DAILY (25 MG EVERY MORNING AND 50 MG EVERY EVENING)
     Route: 048
     Dates: start: 20150213
  2. LYRICA [Suspect]
     Active Substance: PREGABALIN
     Dosage: 75 MG, DAILY (25 MG EVERY MORNING AND 50 MG EVERY EVENING)
     Route: 048
     Dates: start: 20160111
  3. LYRICA [Suspect]
     Active Substance: PREGABALIN
     Dosage: 25 MG (IN THE MORNING, OPTIONAL 1 CAPSULE AT NOON/MIDDAY)
     Route: 048
     Dates: start: 20191118
  4. LYRICA [Suspect]
     Active Substance: PREGABALIN
     Dosage: 50 MG, ONCE DAILT (EVERY EVENING)
     Route: 048
  5. LYRICA [Suspect]
     Active Substance: PREGABALIN
     Dosage: 25 MG (IN THE MORNING, OPTIONAL 1 CAPSULE AT NOON/MIDDAY)
     Route: 048
     Dates: start: 20201117
  6. LYRICA [Suspect]
     Active Substance: PREGABALIN
     Dosage: 1 CAPSULE (50 MG TOTAL) BY MOUTH EVERY EVENING
     Route: 048
     Dates: start: 20201117
  7. LYRICA [Suspect]
     Active Substance: PREGABALIN
     Dosage: 25 MG, 2X/DAY (ONE 25MG PO EACH MORNING AND ONE 25MG EACH NOON)
     Route: 048
  8. ULTRAM [Concomitant]
     Active Substance: TRAMADOL HYDROCHLORIDE
     Indication: Pain
     Dosage: UNK, AS NEEDED (TAKE 2 TABLETS, 100 MG TOTAL EVERY 8 HOURS AS NEEDED)
     Route: 048
     Dates: start: 20150112
  9. ULTRAM [Concomitant]
     Active Substance: TRAMADOL HYDROCHLORIDE
     Dosage: UNK, AS NEEDED (TAKE 2 TABLETS, 100MG TOTAL EVERY 6 HOURS AS NEEDED)
     Route: 048
  10. ULTRAM [Concomitant]
     Active Substance: TRAMADOL HYDROCHLORIDE
     Dosage: UNK, AS NEEDED (TAKE 2 TABLETS, 100MG TOTAL EVERY 6 HOURS AS NEEDED)
     Route: 048
     Dates: start: 20151121
  11. ULTRAM [Concomitant]
     Active Substance: TRAMADOL HYDROCHLORIDE
     Dosage: UNK, AS NEEDED (TAKE 2 TABLETS, 100MG TOTAL EVERY 6 HOURS AS NEEDED)
     Route: 048
     Dates: start: 20151221
  12. VITAMIN D3 [Concomitant]
     Active Substance: CHOLECALCIFEROL
     Dosage: 2000 IU, 1X/DAY
     Route: 048
  13. PENLAC [Concomitant]
     Active Substance: CICLOPIROX
     Indication: Paronychia
     Dosage: UNK, 1X/DAY
     Dates: start: 20140324
  14. PENLAC [Concomitant]
     Active Substance: CICLOPIROX
     Dosage: 8 %, UNK (ONCE PER DAY X 3 MONTHS)
  15. VALIUM [Concomitant]
     Active Substance: DIAZEPAM
     Indication: Anxiety
     Dosage: 2 MG, AS NEEDED
     Route: 048
  16. VALIUM [Concomitant]
     Active Substance: DIAZEPAM
     Dosage: 2 MG, UNK
  17. COLACE [Concomitant]
     Active Substance: DOCUSATE SODIUM
     Dosage: 50 MG, 2X/DAY
     Route: 048
  18. LIDODERM [Concomitant]
     Active Substance: LIDOCAINE
     Dosage: UNK
     Dates: start: 20140709
  19. LIDODERM [Concomitant]
     Active Substance: LIDOCAINE
     Dosage: 700 MG, UNK (700 MG/PATCH)
  20. CYTOMEL [Concomitant]
     Active Substance: LIOTHYRONINE SODIUM
     Dosage: 25 ?G, 1X/DAY
     Route: 048
  21. MIRAPEX [Concomitant]
     Active Substance: PRAMIPEXOLE DIHYDROCHLORIDE
     Dosage: 0.125 MG, 1X/DAY (EVERY EVENING, NIGHTLY)
     Route: 048
  22. PROAIR HFA [Concomitant]
     Active Substance: ALBUTEROL SULFATE
     Dosage: UNK
     Dates: start: 20140123
  23. PROAIR HFA [Concomitant]
     Active Substance: ALBUTEROL SULFATE
     Dosage: 90 UG, UNK (90 MCG/ACTUATION INHALER)
  24. REQUIP [Concomitant]
     Active Substance: ROPINIROLE HYDROCHLORIDE
     Dosage: 0.25 MG, 2X/DAY
     Route: 048
     Dates: start: 20141120
  25. PERCOCET [Concomitant]
     Active Substance: ACETAMINOPHEN\OXYCODONE HYDROCHLORIDE
     Indication: Akathisia
     Dosage: UNK, AS NEEDED
  26. ZOSTAVAX [Concomitant]
     Active Substance: VARICELLA-ZOSTER VIRUS STRAIN OKA/MERCK LIVE ANTIGEN
     Dosage: UNK (19,400 UNIT/0.65 ML)
     Dates: start: 20140910
  27. XANAX [Concomitant]
     Active Substance: ALPRAZOLAM
     Dosage: UNK
  28. VITAMINS [Concomitant]
     Active Substance: VITAMINS
     Dosage: 1 DF, 1X/DAY
     Route: 048
  29. DIETARY SUPPLEMENT\HERBALS\MILK THISTLE [Concomitant]
     Active Substance: DIETARY SUPPLEMENT\HERBALS\MILK THISTLE
     Dosage: 150 MG, 1X/DAY
     Route: 048

REACTIONS (8)
  - Back pain [Unknown]
  - Neck pain [Unknown]
  - Musculoskeletal stiffness [Unknown]
  - Burning sensation [Unknown]
  - Paraesthesia [Unknown]
  - Erythema of eyelid [Unknown]
  - Blepharitis [Unknown]
  - Fatigue [Unknown]
